FAERS Safety Report 5565269-9 (Version None)
Quarter: 2007Q4

REPORT INFORMATION
  Report Type: 
  Country: None (occurrence: None)
  Receive Date: 20071218
  Receipt Date: 20071207
  Transmission Date: 20080405
  Serious: Yes (Hospitalization, Other)
  Sender: FDA-Public Use
  Company Number: HQWYE924406JUL07

PATIENT
  Sex: Male
  Weight: 56 kg

DRUGS (8)
  1. MYLOTARG [Suspect]
     Indication: ACUTE MYELOID LEUKAEMIA RECURRENT
     Route: 041
     Dates: start: 20070510, end: 20070510
  2. MYLOTARG [Suspect]
     Route: 041
     Dates: start: 20070605, end: 20070605
  3. DIFLUCAN [Concomitant]
     Indication: PROPHYLAXIS
     Route: 048
     Dates: start: 20070424
  4. PHENYTOIN SODIUM CAP [Concomitant]
     Route: 041
     Dates: start: 20070527, end: 20070530
  5. BAKTAR [Concomitant]
     Indication: PROPHYLAXIS
     Dosage: 1 DOSE FORM/DAY
     Route: 048
     Dates: start: 20070424
  6. MUCOSTA [Concomitant]
     Indication: PROPHYLAXIS
     Dosage: 3 DOSE FORM/DAY
     Route: 048
     Dates: start: 20070424
  7. TAKEPRON [Concomitant]
     Indication: PROPHYLAXIS
     Route: 048
     Dates: start: 20070424
  8. HARNAL [Concomitant]
     Route: 048
     Dates: start: 20070424

REACTIONS (5)
  - CONDITION AGGRAVATED [None]
  - EPILEPSY [None]
  - NEUTROPHIL COUNT DECREASED [None]
  - PLATELET COUNT DECREASED [None]
  - TONSILLITIS [None]
